FAERS Safety Report 5247361-1 (Version None)
Quarter: 2007Q1

REPORT INFORMATION
  Report Type: 
  Country: None (occurrence: None)
  Receive Date: 20070227
  Receipt Date: 20070215
  Transmission Date: 20070707
  Serious: Yes (Hospitalization, Other)
  Sender: FDA-Public Use
  Company Number: HQWYE046226DEC06

PATIENT
  Sex: Female
  Weight: 63 kg

DRUGS (12)
  1. MYLOTARG [Suspect]
     Indication: ACUTE MYELOID LEUKAEMIA RECURRENT
     Route: 041
     Dates: start: 20061207, end: 20061207
  2. FUNGUARD [Concomitant]
     Dosage: 150 MG/DAY
     Route: 041
     Dates: start: 20061217, end: 20061224
  3. PREDNISOLONE [Suspect]
     Dosage: 120 MG/DAY
     Route: 048
     Dates: start: 20070108, end: 20070114
  4. PREDNISOLONE [Suspect]
     Dosage: 60 MG/DAY
     Route: 048
     Dates: start: 20070115, end: 20070121
  5. PREDNISOLONE [Suspect]
     Dosage: 50 MG/DAY
     Route: 048
     Dates: start: 20070122, end: 20070128
  6. PREDNISOLONE [Suspect]
     Dosage: 40 MG/DAY
     Route: 048
     Dates: start: 20070129
  7. TAZOBACTAM [Concomitant]
     Dosage: 10 G/DAY
     Route: 041
     Dates: start: 20061223, end: 20061223
  8. SOLU-MEDROL [Suspect]
     Dosage: 500 MG/DAY
     Route: 041
     Dates: start: 20061225, end: 20061231
  9. SOLU-MEDROL [Suspect]
     Dosage: 125 MG/DAY
     Route: 041
     Dates: start: 20070101, end: 20070107
  10. AMINOACETIC ACID/CYSTEINE/GLYCYRRHIZIC ACID [Concomitant]
     Dosage: 40 ML/DAY
     Route: 041
     Dates: start: 20070103, end: 20070112
  11. CIPROFLOXACIN [Concomitant]
     Dosage: 1200 MG/DAY
     Route: 041
     Dates: start: 20061213, end: 20061221
  12. DALACIN-S [Suspect]
     Dosage: 2400 MG/DAY
     Route: 041
     Dates: start: 20061222, end: 20061222

REACTIONS (3)
  - INTERSTITIAL LUNG DISEASE [None]
  - LIVER DISORDER [None]
  - TOXIC SKIN ERUPTION [None]
